FAERS Safety Report 7770525-X (Version None)
Quarter: 2011Q3

REPORT INFORMATION
  Report Type: 
  Country: None (occurrence: None)
  Receive Date: 20110922
  Receipt Date: 20110331
  Transmission Date: 20111222
  Serious: No
  Sender: FDA-Public Use
  Company Number: US-ASTRAZENECA-2011SE18965

PATIENT
  Age: 24 Year
  Sex: Female

DRUGS (1)
  1. SEROQUEL [Suspect]
     Indication: AGGRESSION
     Route: 048

REACTIONS (10)
  - MATERNAL EXPOSURE DURING PREGNANCY [None]
  - OVERDOSE [None]
  - AGGRESSION [None]
  - COLD SWEAT [None]
  - TREMOR [None]
  - DRUG DOSE OMISSION [None]
  - BRAIN INJURY [None]
  - BIPOLAR DISORDER [None]
  - BORDERLINE PERSONALITY DISORDER [None]
  - VOMITING [None]
